FAERS Safety Report 17746217 (Version 3)
Quarter: 2020Q2

REPORT INFORMATION
  Report Type: Report from Study
  Country: AR (occurrence: AR)
  Receive Date: 20200505
  Receipt Date: 20200525
  Transmission Date: 20200714
  Serious: Yes (Hospitalization, Other)
  Sender: FDA-Public Use
  Company Number: NVSC2020AR121636

PATIENT
  Sex: Female
  Weight: 60 kg

DRUGS (6)
  1. WARFARIN [Concomitant]
     Active Substance: WARFARIN
     Indication: PRODUCT USED FOR UNKNOWN INDICATION
     Dosage: 0.5 DF, QD
     Route: 065
  2. BISOPROLOL [Concomitant]
     Active Substance: BISOPROLOL
     Indication: PRODUCT USED FOR UNKNOWN INDICATION
     Dosage: 2.5 MG, QD
     Route: 065
  3. WARFARIN [Concomitant]
     Active Substance: WARFARIN
     Dosage: 1 DF, QD(ON WEDNESDAYS FULL TABLET)
     Route: 065
  4. ENTRESTO [Suspect]
     Active Substance: SACUBITRIL\VALSARTAN
     Indication: CARDIAC FAILURE
     Dosage: 2 DF, QD (24MG SACUBITRIL/ 26MG VALSARTAN)
     Route: 065
     Dates: start: 202001
  5. LEVOTHYROXINE. [Concomitant]
     Active Substance: LEVOTHYROXINE
     Indication: PRODUCT USED FOR UNKNOWN INDICATION
     Dosage: 100 MG, QD (STARTED MORE THAN 10 YEARS AGO)
     Route: 065
     Dates: start: 2010
  6. LEVOTHYROXINE. [Concomitant]
     Active Substance: LEVOTHYROXINE
     Dosage: 50 MG, QD
     Route: 065

REACTIONS (9)
  - Pulmonary oedema [Recovered/Resolved]
  - Renal disorder [Unknown]
  - Urinary tract infection [Unknown]
  - Malaise [Unknown]
  - Fluid retention [Recovering/Resolving]
  - Pain [Unknown]
  - Weight increased [Recovering/Resolving]
  - Fatigue [Unknown]
  - Agitation [Recovered/Resolved]
